FAERS Safety Report 4767664-4 (Version None)
Quarter: 2005Q3

REPORT INFORMATION
  Report Type: 
  Country: None (occurrence: None)
  Receive Date: 20050912
  Receipt Date: 20050829
  Transmission Date: 20060218
  Serious: Yes (Hospitalization, Other)
  Sender: FDA-Public Use
  Company Number: 2005089925

PATIENT
  Age: 62 Year
  Sex: Male

DRUGS (16)
  1. ATORVASTATIN CALCIUM [Suspect]
     Indication: MIXED HYPERLIPIDAEMIA
     Dosage: 10 MG (10 MG, 1 IN 1 D), ORAL
     Route: 048
     Dates: start: 20050202, end: 20050701
  2. AMLODIPINE [Suspect]
     Indication: HYPERTENSION
     Dosage: 5 MG (5 MG, 1 IN 1 D),
     Dates: start: 20050401, end: 20050701
  3. FUROSEMIDE [Suspect]
     Indication: ILL-DEFINED DISORDER
     Dates: end: 20050101
  4. CAPTOPRIL [Suspect]
     Indication: RENAL FAILURE
     Dosage: ORAL
     Route: 048
     Dates: end: 20050701
  5. METFORMIN HCL [Suspect]
     Indication: DIABETES MELLITUS
     Dosage: (3 IN 1 D), ORAL
     Route: 048
     Dates: end: 20050701
  6. RILMENIDINE (RILMENIDINE) [Suspect]
     Indication: ILL-DEFINED DISORDER
     Dosage: 2 MG (1 MG, 2 IN 1 D),
     Dates: start: 20050501, end: 20050601
  7. INSULIN [Concomitant]
  8. RILMENIDINE DIHYDROGEN PHOSPHATE (RILMENIDINE DIHYDROGEN PHOSPHATE) [Concomitant]
  9. NAFTIDROFURYL (NAFIDROFURYL) [Concomitant]
  10. NITROGLYCERIN [Concomitant]
  11. ALLOPURINOL [Concomitant]
  12. ACETYLSALICYLATE LYSINE (ACETYLSALICYLATE LYSINE) [Concomitant]
  13. DIGOXIN [Concomitant]
  14. FENOTEROL W/IPRATROPIUM (FENOTEROL, IPRATROPIUM) [Concomitant]
  15. BUDESONIDE [Concomitant]
  16. FENOTEROL HYDROBROMIDE (FENOTEROL HYDROBROMIDE) [Concomitant]

REACTIONS (17)
  - ARTERIAL DISORDER [None]
  - ATELECTASIS [None]
  - BREATH SOUNDS ABNORMAL [None]
  - C-REACTIVE PROTEIN INCREASED [None]
  - CARDIOMEGALY [None]
  - CHEST X-RAY ABNORMAL [None]
  - DEHYDRATION [None]
  - DIALYSIS [None]
  - DIARRHOEA [None]
  - DYSPNOEA EXERTIONAL [None]
  - GLYCOSYLATED HAEMOGLOBIN INCREASED [None]
  - HAEMOGLOBIN DECREASED [None]
  - HYPERTENSION [None]
  - NAUSEA [None]
  - RENAL FAILURE ACUTE [None]
  - RENAL TUBULAR NECROSIS [None]
  - WHITE BLOOD CELL COUNT INCREASED [None]
